FAERS Safety Report 8069385-1 (Version None)
Quarter: 2012Q1

REPORT INFORMATION
  Report Type: 
  Country: None (occurrence: None)
  Receive Date: 20120118
  Receipt Date: 20120110
  Transmission Date: 20120608
  Serious: Yes (Other)
  Sender: FDA-Public Use
  Company Number: JPI-P-018468

PATIENT
  Age: 60 Year
  Sex: Female

DRUGS (3)
  1. XYREM [Suspect]
     Indication: NARCOLEPSY
     Dosage: SEE IMAGE: ORAL
     Dates: start: 20110101
  2. XYREM [Suspect]
     Indication: NARCOLEPSY
     Dosage: SEE IMAGE: ORAL
     Dates: start: 20060309
  3. XYREM [Suspect]
     Indication: NARCOLEPSY
     Dosage: SEE IMAGE: ORAL
     Dates: start: 20110916, end: 20110101

REACTIONS (7)
  - BLOOD PRESSURE INCREASED [None]
  - FALL [None]
  - WEIGHT INCREASED [None]
  - EMOTIONAL DISTRESS [None]
  - PELVIC FRACTURE [None]
  - DRUG ABUSE [None]
  - OVERDOSE [None]
